FAERS Safety Report 13253765 (Version 1)
Quarter: 2017Q1

REPORT INFORMATION
  Report Type: Report from Study
  Country: US (occurrence: US)
  Receive Date: 20170220
  Receipt Date: 20170220
  Transmission Date: 20170428
  Serious: Yes (Death)
  Sender: FDA-Public Use
  Company Number: US-MYLANLABS-2017M1009552

PATIENT

DRUGS (3)
  1. CARBOPLATIN. [Suspect]
     Active Substance: CARBOPLATIN
     Indication: BRONCHIOLOALVEOLAR CARCINOMA
     Dosage: AUC OF 6
     Route: 065
  2. PACLITAXEL. [Suspect]
     Active Substance: PACLITAXEL
     Indication: BRONCHIOLOALVEOLAR CARCINOMA
     Dosage: 200MG/M2
     Route: 065
  3. SEPANTRONIUM BROMIDE [Suspect]
     Active Substance: SEPANTRONIUM BROMIDE
     Indication: BRONCHIOLOALVEOLAR CARCINOMA
     Dosage: STARTING DOSE WAS 3.6MG/M2/DAY
     Route: 041

REACTIONS (1)
  - Pneumonitis [Fatal]
